FAERS Safety Report 15954524 (Version 2)
Quarter: 2020Q4

REPORT INFORMATION
  Report Type: Spontaneous
  Country: CZ (occurrence: CZ)
  Receive Date: 20190212
  Receipt Date: 20201113
  Transmission Date: 20210113
  Serious: Yes (Other)
  Sender: FDA-Public Use
  Company Number: CZ-MYLANLABS-2019M1011966

PATIENT
  Age: 66 Year
  Sex: Male

DRUGS (2)
  1. FRAXIPARINE [Suspect]
     Active Substance: NADROPARIN CALCIUM
     Indication: PRODUCT USED FOR UNKNOWN INDICATION
     Dosage: 0.6 ML, SINGLE
     Route: 058
  2. DIAZEPAM. [Suspect]
     Active Substance: DIAZEPAM
     Indication: PRODUCT USED FOR UNKNOWN INDICATION
     Dosage: UNK
     Route: 065

REACTIONS (5)
  - Angioedema [Unknown]
  - Type I hypersensitivity [Unknown]
  - Anaphylactic reaction [Unknown]
  - Dyspnoea [Unknown]
  - Urticaria [Unknown]
